FAERS Safety Report 10092031 (Version 7)
Quarter: 2014Q4

REPORT INFORMATION
  Report Type: Spontaneous
  Country: US (occurrence: US)
  Receive Date: 20140421
  Receipt Date: 20141117
  Transmission Date: 20150528
  Serious: Yes (Hospitalization)
  Sender: FDA-Public Use
  Company Number: US-GILEAD-2013-0071916

PATIENT
  Age: 44 Year
  Sex: Female

DRUGS (8)
  1. FLOLAN [Suspect]
     Active Substance: EPOPROSTENOL SODIUM
     Indication: PULMONARY ARTERIAL HYPERTENSION
     Dosage: 21NG/KG/MIN CONTINUOUSLY, 1.5 MG VIAL STRENGTH, 45,000 NG/ML CONCENTRATION
     Route: 042
     Dates: start: 19990503
  2. ADHESIVE TAPE [Suspect]
     Active Substance: ADHESIVE TAPE
     Indication: PRODUCT USED FOR UNKNOWN INDICATION
     Dosage: UNK
     Route: 065
  3. LETAIRIS [Suspect]
     Active Substance: AMBRISENTAN
     Indication: PRODUCT USED FOR UNKNOWN INDICATION
     Dosage: UNK
     Route: 065
  4. COUMADIN [Suspect]
     Active Substance: WARFARIN SODIUM
     Indication: PRODUCT USED FOR UNKNOWN INDICATION
     Dosage: UNK
     Route: 065
  5. ADCIRCA [Suspect]
     Active Substance: TADALAFIL
     Indication: PRODUCT USED FOR UNKNOWN INDICATION
     Dosage: UNK
     Route: 065
  6. FLOLAN [Suspect]
     Active Substance: EPOPROSTENOL SODIUM
     Dosage: 21 NG/KG/MIN, UNK
     Route: 042
  7. FLOLAN [Suspect]
     Active Substance: EPOPROSTENOL SODIUM
     Dosage: UNK
     Route: 042
     Dates: start: 19990503
  8. FLOLAN [Suspect]
     Active Substance: EPOPROSTENOL SODIUM
     Dosage: 21 NG/KG/MIN CONTINUOUSLY, 1.5 MG VIAL STRENGTH, 45,000 NG/ML CONCENTRATION
     Route: 042
     Dates: start: 19980106

REACTIONS (14)
  - Pain [Recovering/Resolving]
  - Ear infection [Unknown]
  - Erythema [Recovering/Resolving]
  - Anxiety [Unknown]
  - Application site reaction [Unknown]
  - Fatigue [Unknown]
  - Device issue [Unknown]
  - Drug dose omission [Unknown]
  - Asthma [Unknown]
  - Upper respiratory tract infection [Unknown]
  - Anaemia [Unknown]
  - Haemoglobin decreased [Unknown]
  - Asthenia [Unknown]
  - Surgery [Unknown]
